FAERS Safety Report 5119293-0 (Version None)
Quarter: 2006Q4

REPORT INFORMATION
  Report Type: 
  Country: None (occurrence: None)
  Receive Date: 20061002
  Receipt Date: 20061002
  Transmission Date: 20070319
  Serious: No
  Sender: FDA-Public Use
  Company Number: None

PATIENT

DRUGS (3)
  1. NOVOLOG MIX 70/30 [Suspect]
     Dosage: INJECTABLE
  2. NOVOLOG [Suspect]
     Dosage: INJECTABLE
  3. LANTUS [Suspect]
     Dosage: INJECTABLE

REACTIONS (7)
  - HYPERGLYCAEMIA [None]
  - HYPOGLYCAEMIA [None]
  - MEDICATION ERROR [None]
  - PHARMACEUTICAL PRODUCT COMPLAINT [None]
  - POOR QUALITY DRUG ADMINISTERED [None]
  - THERAPY NON-RESPONDER [None]
  - WRONG DRUG ADMINISTERED [None]
